FAERS Safety Report 24242186 (Version 3)
Quarter: 2024Q4

REPORT INFORMATION
  Report Type: Report from Study
  Country: ES (occurrence: ES)
  Receive Date: 20240823
  Receipt Date: 20241022
  Transmission Date: 20250114
  Serious: Yes (Other)
  Sender: JOHNSON AND JOHNSON
  Company Number: ES-JNJFOC-20240850861

PATIENT
  Age: 59 Year
  Sex: Male

DRUGS (1)
  1. TALQUETAMAB [Suspect]
     Active Substance: TALQUETAMAB
     Indication: Plasma cell myeloma
     Route: 065

REACTIONS (9)
  - Cataract [Unknown]
  - Nasopharyngitis [Unknown]
  - Mucocutaneous toxicity [Unknown]
  - Xerosis [Unknown]
  - Dysgeusia [Unknown]
  - Onychomadesis [Unknown]
  - Nail dystrophy [Unknown]
  - Onycholysis [Unknown]
  - Nail ridging [Unknown]
